FAERS Safety Report 16863457 (Version 1)
Quarter: 2019Q3

REPORT INFORMATION
  Report Type: Report from Study
  Country: IT (occurrence: IT)
  Receive Date: 20190927
  Receipt Date: 20190927
  Transmission Date: 20191005
  Serious: Yes (Hospitalization)
  Sender: FDA-Public Use
  Company Number: IT-INCYTE CORPORATION-2018IN010520

PATIENT

DRUGS (9)
  1. JAKAVI [Suspect]
     Active Substance: RUXOLITINIB
     Indication: MYELOFIBROSIS
     Dosage: 20 OT, UNK
     Route: 048
     Dates: start: 20180111, end: 20180125
  2. JAKAVI [Suspect]
     Active Substance: RUXOLITINIB
     Dosage: 10 OT, UNK
     Route: 048
     Dates: start: 20180308, end: 20180611
  3. JAKAVI [Suspect]
     Active Substance: RUXOLITINIB
     Indication: POLYCYTHAEMIA VERA
     Dosage: 40 OT, UNK
     Route: 048
     Dates: start: 20171116, end: 20180125
  4. JAKAVI [Suspect]
     Active Substance: RUXOLITINIB
     Dosage: 10 OT, UNK
     Route: 048
     Dates: start: 20180126, end: 20180208
  5. JAKAVI [Suspect]
     Active Substance: RUXOLITINIB
     Dosage: 5 OT, UNK
     Route: 048
     Dates: start: 20180612
  6. IRBESARTAN. [Concomitant]
     Active Substance: IRBESARTAN
     Indication: HYPERTENSION
     Dosage: 300 MG, UNK
     Route: 065
  7. JAKAVI [Suspect]
     Active Substance: RUXOLITINIB
     Dosage: 5 OT, UNK
     Route: 048
     Dates: start: 20180209, end: 20180307
  8. COUMADIN [Concomitant]
     Active Substance: WARFARIN SODIUM
     Indication: ATRIAL FIBRILLATION
     Dosage: 5 MG, UNK
     Route: 065
     Dates: start: 20190312
  9. METOPROLOL. [Concomitant]
     Active Substance: METOPROLOL
     Indication: ATRIAL FIBRILLATION
     Dosage: 100 MG, UNK
     Route: 065

REACTIONS (8)
  - Dizziness [Unknown]
  - Asthenia [Unknown]
  - Headache [Unknown]
  - Oral herpes [Unknown]
  - Anaemia [Unknown]
  - Disturbance in attention [Unknown]
  - Subdural haematoma [Recovered/Resolved]
  - Dyspnoea [Unknown]

NARRATIVE: CASE EVENT DATE: 20180111
